FAERS Safety Report 7025670-3 (Version None)
Quarter: 2010Q4

REPORT INFORMATION
  Report Type: 
  Country: None (occurrence: None)
  Receive Date: 20101004
  Receipt Date: 20100323
  Transmission Date: 20110411
  Serious: Yes (Other)
  Sender: FDA-Public Use
  Company Number: US-BAYER-201014072NA

PATIENT
  Age: 23 Year
  Sex: Female
  Weight: 55 kg

DRUGS (37)
  1. YAZ [Suspect]
     Indication: CONTRACEPTION
     Route: 048
     Dates: start: 20070101, end: 20090101
  2. YASMIN [Suspect]
     Indication: CONTRACEPTION
     Route: 048
     Dates: start: 20040101, end: 20060101
  3. BIAXIN [Concomitant]
     Dates: start: 20080101
  4. DOXYCYCLIN [Concomitant]
     Dates: start: 20060101
  5. DOXYCYCLIN [Concomitant]
     Dates: start: 20100101
  6. DOXYCYCLIN [Concomitant]
     Dates: start: 20090101
  7. BACTRIM DS [Concomitant]
     Dates: start: 20090101
  8. EXCEDRIN (MIGRAINE) [Concomitant]
     Dosage: SPORADICALLY
  9. POTASSIUM (OTC) NOS [Concomitant]
     Dates: start: 20070101
  10. KINEVAC [Concomitant]
     Dosage: HEPATOBILIARY SCAN
     Dates: start: 20091007, end: 20091007
  11. SMT/TMP [Concomitant]
     Dates: start: 20060601
  12. TRAMADOL HCL [Concomitant]
     Dates: start: 20060801
  13. DOXYCYCLINE [Concomitant]
     Dates: start: 20061001
  14. ZOFRAN [Concomitant]
     Dates: start: 20061201
  15. PROMETHAZINE [Concomitant]
     Dates: start: 20061201
  16. METOCLOPRAMID [Concomitant]
     Dates: start: 20061201
  17. OXYCODONE [Concomitant]
     Dates: start: 20060601
  18. TRETINOIN [Concomitant]
     Dates: start: 20060601
  19. SERTRALINE HYDROCHLORIDE [Concomitant]
     Dates: start: 20080101
  20. LOESTRIN 1.5/30 [Concomitant]
     Dates: start: 20081101
  21. LOESTRIN 1.5/30 [Concomitant]
     Dates: start: 20080901
  22. METHYLPREDNISOLONE ACETATE [Concomitant]
     Dates: start: 20090601
  23. BUPROPION [Concomitant]
     Dates: start: 20090301
  24. BUPROPION [Concomitant]
     Dates: start: 20090301
  25. CLINDAMYCIN [Concomitant]
     Dates: start: 20090601
  26. ALPRAZOLAM [Concomitant]
     Dates: start: 20090601
  27. ALPRAZOLAM [Concomitant]
     Dates: start: 20090601
  28. OXYCODONE HCL AND ACETAMINOPHEN [Concomitant]
     Dates: start: 20090601
  29. IBUPROFEN [Concomitant]
     Dates: start: 20061201
  30. LEVAQUIN [Concomitant]
     Dates: start: 20080201
  31. ONDANSETRON [Concomitant]
     Dates: start: 20080201
  32. OXYCODONE [Concomitant]
     Dates: start: 20080201
  33. DRYSOL [Concomitant]
     Dates: start: 20080401
  34. CLINDAMYCIN [Concomitant]
     Dates: start: 20090601
  35. CLINDAMYCIN [Concomitant]
     Dates: start: 20081001
  36. DOXYCYCLIN [Concomitant]
     Dates: start: 20081201
  37. DOXYCYCLIN [Concomitant]
     Dates: start: 20081001

REACTIONS (3)
  - ABDOMINAL DISCOMFORT [None]
  - GALLBLADDER DISORDER [None]
  - NAUSEA [None]
